FAERS Safety Report 7124169-3 (Version None)
Quarter: 2010Q4

REPORT INFORMATION
  Report Type: 
  Country: None (occurrence: None)
  Receive Date: 20101126
  Receipt Date: 20101116
  Transmission Date: 20110411
  Serious: Yes (Hospitalization, Other)
  Sender: FDA-Public Use
  Company Number: PHEH2009US14109

PATIENT
  Sex: Male
  Weight: 65.9 kg

DRUGS (4)
  1. EXJADE [Suspect]
     Indication: HAEMATOPOIETIC NEOPLASM
     Dosage: 1250 MG PER DAILY
     Route: 048
  2. EXJADE [Suspect]
     Indication: LYMPHATIC DISORDER
     Dosage: LOWER DOSE
  3. ARANESP [Concomitant]
  4. EPOETIN NOS [Concomitant]

REACTIONS (14)
  - ANAEMIA [None]
  - BREATH SOUNDS ABNORMAL [None]
  - CARDIAC FAILURE CONGESTIVE [None]
  - CERVICAL VERTEBRAL FRACTURE [None]
  - CHRONIC OBSTRUCTIVE PULMONARY DISEASE [None]
  - CORONARY ARTERY DISEASE [None]
  - DIARRHOEA [None]
  - DYSPNOEA [None]
  - ECCHYMOSIS [None]
  - ISCHAEMIC CARDIOMYOPATHY [None]
  - MYELODYSPLASTIC SYNDROME [None]
  - PNEUMONIA [None]
  - PULMONARY FIBROSIS [None]
  - PULMONARY OEDEMA [None]
